FAERS Safety Report 23085114 (Version 1)
Quarter: 2023Q4

REPORT INFORMATION
  Report Type: Spontaneous
  Country: FR (occurrence: None)
  Receive Date: 20231019
  Receipt Date: 20231019
  Transmission Date: 20240110
  Serious: Yes (Other)
  Sender: FDA-Public Use
  Company Number: 2023A235590

PATIENT
  Age: 12 Year
  Sex: Male

DRUGS (3)
  1. KOSELUGO [Suspect]
     Active Substance: SELUMETINIB
     Indication: Neurofibroma
     Route: 048
     Dates: start: 20230301
  2. KOSELUGO [Suspect]
     Active Substance: SELUMETINIB
     Indication: Neurofibroma
     Dosage: 25 2X EVEN DAY AND 1X ODD DAY
     Route: 048
     Dates: start: 20230622
  3. KOSELUGO [Suspect]
     Active Substance: SELUMETINIB
     Indication: Neurofibroma
     Route: 048
     Dates: start: 20230629, end: 20230921

REACTIONS (6)
  - Neoplasm progression [Unknown]
  - Diarrhoea [Unknown]
  - Gastrointestinal stoma complication [Unknown]
  - Paronychia [Unknown]
  - Impaired healing [Unknown]
  - Off label use [Unknown]
